FAERS Safety Report 18154301 (Version 5)
Quarter: 2021Q2

REPORT INFORMATION
  Report Type: Report from Study
  Country: PT (occurrence: PT)
  Receive Date: 20200817
  Receipt Date: 20210618
  Transmission Date: 20210717
  Serious: Yes (Hospitalization)
  Sender: FDA-Public Use
  Company Number: PT-ROCHE-2653846

PATIENT
  Age: 47 Year
  Sex: Male
  Weight: 74 kg

DRUGS (19)
  1. HYDROXYZINE [Concomitant]
     Active Substance: HYDROXYZINE HYDROCHLORIDE
     Dosage: FURTHER ADMINISTRATIONS ON: 21/SEP/2012 (WEEK 2), 22/FEB/2013 (WEEK 24), 08/AUG/2013 (WEEK 48), 24/J
     Dates: start: 20120907
  2. METAMIZOL [Concomitant]
     Active Substance: METAMIZOLE SODIUM
     Indication: HEADACHE
     Dates: start: 20200801, end: 20200803
  3. METAMIZOL [Concomitant]
     Active Substance: METAMIZOLE SODIUM
     Indication: SUPRAPUBIC PAIN
     Dates: start: 20160417, end: 20160502
  4. LISINOPRIL. [Concomitant]
     Active Substance: LISINOPRIL
     Dates: start: 20180328
  5. OCRELIZUMAB. [Suspect]
     Active Substance: OCRELIZUMAB
     Indication: RELAPSING MULTIPLE SCLEROSIS
     Dosage: WEEK 1?ADMINISTER INFUSIONS ON DAYS 1 AND 15 FOR THE FIRST DOSE AND AS A SINGLE INFUSION OF 600 MG F
     Route: 042
     Dates: start: 20120907, end: 20120907
  6. DITROPAN [Concomitant]
     Active Substance: OXYBUTYNIN CHLORIDE
     Dates: start: 20190924
  7. TICAGRELOR. [Concomitant]
     Active Substance: TICAGRELOR
     Dates: start: 20180729, end: 20210125
  8. TICAGRELOR. [Concomitant]
     Active Substance: TICAGRELOR
     Dates: start: 20180328, end: 20180729
  9. INTERFERON BETA?1A [Suspect]
     Active Substance: INTERFERON BETA-1A
     Indication: RELAPSING MULTIPLE SCLEROSIS
     Route: 058
     Dates: start: 20120907, end: 20140723
  10. TICAGRELOR. [Concomitant]
     Active Substance: TICAGRELOR
     Indication: MYOCARDIAL INFARCTION
     Dates: start: 20180324, end: 20180324
  11. OCRELIZUMAB. [Suspect]
     Active Substance: OCRELIZUMAB
     Indication: RELAPSING MULTIPLE SCLEROSIS
     Dosage: OLE WEEK 0?ADMINISTER INFUSIONS ON DAYS 1 AND 15 FOR THE FIRST DOSE AND AS A SINGLE INFUSION OF 600
     Route: 042
     Dates: start: 20140725, end: 20140725
  12. METHYLPREDNISOLONE. [Concomitant]
     Active Substance: METHYLPREDNISOLONE
     Dosage: FURTHER ADMINISTRATIONS ON: 21/SEP/2012 (WEEK 2), 22/FEB/2013 (WEEK 24), 08/AUG/2013 (WEEK 48), 24/J
     Dates: start: 20120907
  13. IBUPROFEN. [Concomitant]
     Active Substance: IBUPROFEN
     Indication: HEADACHE
     Dates: start: 20200704, end: 20200801
  14. IBUPROFEN. [Concomitant]
     Active Substance: IBUPROFEN
     Indication: PYREXIA
  15. PARACETAMOL [Concomitant]
     Active Substance: ACETAMINOPHEN
     Dosage: FURTHER ADMINISTRATIONS ON: 21/SEP/2012 (WEEK 2), 22/FEB/2013 (WEEK 24), 08/AUG/2013 (WEEK 48), 24/J
     Dates: start: 20120907
  16. PLACEBO [Suspect]
     Active Substance: UNSPECIFIED INGREDIENT
     Indication: RELAPSING MULTIPLE SCLEROSIS
     Route: 058
     Dates: start: 20120907, end: 20140723
  17. TICAGRELOR. [Concomitant]
     Active Substance: TICAGRELOR
     Dates: start: 20161114, end: 20161119
  18. BISOPROLOL [Concomitant]
     Active Substance: BISOPROLOL
     Dates: start: 20180324
  19. LORAZEPAM. [Concomitant]
     Active Substance: LORAZEPAM
     Indication: INSOMNIA
     Dates: start: 20200801, end: 20200821

REACTIONS (1)
  - Herpes simplex meningitis [Recovered/Resolved]

NARRATIVE: CASE EVENT DATE: 20200727
